FAERS Safety Report 14986015 (Version 2)
Quarter: 2018Q2

REPORT INFORMATION
  Report Type: Spontaneous
  Country: PL (occurrence: PL)
  Receive Date: 20180607
  Receipt Date: 20180629
  Transmission Date: 20180711
  Serious: Yes (Death, Other)
  Sender: FDA-Public Use
  Company Number: PL-ROCHE-2135197

PATIENT
  Age: 68 Year
  Sex: Female
  Weight: 71.4 kg

DRUGS (3)
  1. ROACTEMRA [Suspect]
     Active Substance: TOCILIZUMAB
     Indication: RHEUMATOID ARTHRITIS
     Route: 042
     Dates: start: 20180212, end: 20180507
  2. ROACTEMRA [Suspect]
     Active Substance: TOCILIZUMAB
     Dosage: 4TH INFUSION
     Route: 042
     Dates: start: 20180507
  3. METEX (GERMANY) [Concomitant]
     Active Substance: METHOTREXATE SODIUM
     Indication: RHEUMATOID ARTHRITIS
     Route: 058
     Dates: end: 20180602

REACTIONS (18)
  - Metastases to liver [Fatal]
  - Lung neoplasm [Unknown]
  - Haematochezia [Unknown]
  - Anaemia [Unknown]
  - Blood creatinine increased [Unknown]
  - Neoplasm [Unknown]
  - Yellow skin [Unknown]
  - Faeces discoloured [Unknown]
  - Ascites [Unknown]
  - Platelet count decreased [Unknown]
  - Red blood cell sedimentation rate decreased [Unknown]
  - C-reactive protein decreased [Unknown]
  - Metastases to liver [Unknown]
  - Weight increased [Unknown]
  - Blood bilirubin increased [Unknown]
  - Waist circumference increased [Unknown]
  - Blood alkaline phosphatase increased [Unknown]
  - Glomerular filtration rate decreased [Unknown]

NARRATIVE: CASE EVENT DATE: 20180604
